FAERS Safety Report 10676676 (Version 1)
Quarter: 2014Q4

REPORT INFORMATION
  Report Type: Spontaneous
  Country: US (occurrence: None)
  Receive Date: 20141223
  Receipt Date: 20141223
  Transmission Date: 20150529
  Serious: Yes (Other)
  Sender: FDA-Public Use
  Company Number: None

PATIENT
  Sex: Male
  Weight: 25.4 kg

DRUGS (1)
  1. TAMIFLU [Suspect]
     Active Substance: OSELTAMIVIR PHOSPHATE
     Indication: INFLUENZA
     Dosage: 2 TABLESPOONS
     Route: 048
     Dates: start: 20141222

REACTIONS (2)
  - Drug dispensing error [None]
  - Product tampering [None]

NARRATIVE: CASE EVENT DATE: 20141222
